FAERS Safety Report 24973580 (Version 1)
Quarter: 2025Q1

REPORT INFORMATION
  Report Type: Spontaneous
  Country: US (occurrence: US)
  Receive Date: 20250217
  Receipt Date: 20250217
  Transmission Date: 20250409
  Serious: Yes (Death)
  Sender: ROCHE
  Company Number: US-ROCHE-10000208541

PATIENT
  Sex: Female

DRUGS (2)
  1. XOLAIR PFS [Suspect]
     Active Substance: OMALIZUMAB
     Indication: Asthma
     Dosage: 75MG/0.5ML
     Route: 058
     Dates: start: 202202
  2. XOLAIR PFS [Suspect]
     Active Substance: OMALIZUMAB
     Dosage: 150 MG/ML
     Route: 058
     Dates: start: 202202

REACTIONS (1)
  - General physical health deterioration [Fatal]
